FAERS Safety Report 8791538 (Version 1)
Quarter: 2012Q4

REPORT INFORMATION
  Report Type: Spontaneous
  Country: IT (occurrence: None)
  Receive Date: 20120913
  Receipt Date: 20120913
  Transmission Date: 20130627
  Serious: Yes (Hospitalization)
  Sender: FDA-Public Use
  Company Number: GER/ITL/12/0025748

PATIENT
  Age: 69 Year
  Sex: Female

DRUGS (1)
  1. RAMIPRIL (RAMIPRIL) [Suspect]
     Indication: HYPERTENSION
     Dosage: 5 mg, 1 in 1 D, Oral
     Route: 048
     Dates: start: 20120502, end: 20120504

REACTIONS (3)
  - Nausea [None]
  - Palpitations [None]
  - Epigastric discomfort [None]
